FAERS Safety Report 6970099-7 (Version None)
Quarter: 2010Q3

REPORT INFORMATION
  Report Type: 
  Country: None (occurrence: None)
  Receive Date: 20100903
  Receipt Date: 20100819
  Transmission Date: 20110219
  Serious: Yes (Other)
  Sender: FDA-Public Use
  Company Number: 1000015972

PATIENT
  Age: 74 Year
  Sex: Male
  Weight: 78 kg

DRUGS (3)
  1. ESCITALOPRAM [Suspect]
     Indication: DEPRESSION
     Dosage: 10 MG (10 MG, 1 IN 1 D) ORAL
     Route: 048
     Dates: start: 20100520, end: 20100813
  2. PRAVASTATIN [Concomitant]
  3. VASTAREL [Concomitant]

REACTIONS (4)
  - ANXIETY [None]
  - DYSKINESIA [None]
  - ERECTILE DYSFUNCTION [None]
  - PARAESTHESIA [None]
